FAERS Safety Report 24105872 (Version 1)
Quarter: 2024Q3

REPORT INFORMATION
  Report Type: Report from Study
  Country: VN (occurrence: VN)
  Receive Date: 20240717
  Receipt Date: 20240717
  Transmission Date: 20241016
  Serious: Yes (Death, Other)
  Sender: PFIZER
  Company Number: VN-TAKEDA-2024TUS054859

PATIENT
  Age: 50 Year
  Sex: Female

DRUGS (2)
  1. ADCETRIS [Suspect]
     Active Substance: BRENTUXIMAB VEDOTIN
     Indication: Hodgkin^s disease refractory
     Dosage: 77 MILLIGRAM
     Route: 042
     Dates: start: 20240506
  2. ADCETRIS [Suspect]
     Active Substance: BRENTUXIMAB VEDOTIN
     Dosage: 77 MILLIGRAM
     Route: 042

REACTIONS (2)
  - Death [Fatal]
  - Lymphadenopathy [Unknown]

NARRATIVE: CASE EVENT DATE: 20240529
